FAERS Safety Report 7550240-8 (Version None)
Quarter: 2011Q2

REPORT INFORMATION
  Report Type: 
  Country: None (occurrence: None)
  Receive Date: 20110615
  Receipt Date: 20110602
  Transmission Date: 20111010
  Serious: Yes (Hospitalization)
  Sender: FDA-Public Use
  Company Number: US-CELGENEUS-163-21660-11060970

PATIENT
  Sex: Female

DRUGS (3)
  1. GM-CSF [Suspect]
     Indication: OVARIAN CANCER
     Dosage: 250 MICROGRAM
     Route: 065
  2. ABRAXANE [Suspect]
     Indication: OVARIAN CANCER
     Dosage: 100 MILLIGRAM/SQ. METER
     Route: 065
  3. GM-CSF [Suspect]
     Dosage: 250 MICROGRAM
     Route: 065

REACTIONS (3)
  - PLEURAL EFFUSION [None]
  - OESOPHAGITIS [None]
  - INTESTINAL OBSTRUCTION [None]
